FAERS Safety Report 7379735-7 (Version None)
Quarter: 2011Q1

REPORT INFORMATION
  Report Type: 
  Country: None (occurrence: None)
  Receive Date: 20110329
  Receipt Date: 20110323
  Transmission Date: 20110831
  Serious: Yes (Other)
  Sender: FDA-Public Use
  Company Number: US-PFIZER INC-2011065056

PATIENT
  Sex: Female
  Weight: 63.039 kg

DRUGS (6)
  1. FOSAMAX [Concomitant]
     Dosage: UNK
  2. LYRICA [Suspect]
     Indication: FIBROMYALGIA
     Dosage: 100 MG, 2X/DAY
     Route: 048
     Dates: start: 20090101, end: 20110322
  3. ADVAIR DISKUS 100/50 [Concomitant]
     Indication: ASTHMA
     Dosage: UNK
  4. MILNACIPRAN HYDROCHLORIDE [Concomitant]
     Indication: OSTEOARTHRITIS
     Dosage: UNK
  5. ESTRACE [Concomitant]
     Dosage: UNK, DAILY
  6. CEFACLOR [Concomitant]
     Indication: ASTHMA
     Dosage: UNK

REACTIONS (3)
  - AMNESIA [None]
  - MUSCLE SPASMS [None]
  - APHASIA [None]
